FAERS Safety Report 12962635 (Version 3)
Quarter: 2018Q4

REPORT INFORMATION
  Report Type: Spontaneous
  Country: US (occurrence: US)
  Receive Date: 20161121
  Receipt Date: 20181029
  Transmission Date: 20190204
  Serious: Yes (Life-Threatening, Other)
  Sender: FDA-Public Use
  Company Number: US-BAUSCH-BL-2016-028345

PATIENT
  Age: 28 Year
  Sex: Female

DRUGS (3)
  1. IRINOTECAN [Suspect]
     Active Substance: IRINOTECAN
     Indication: METASTATIC GASTRIC CANCER
     Dosage: FIRST CYCLE, FOLLOWED BY THE SECOND CYCLE AFTER 2 WEEKS
     Route: 065
  2. FLUOROURACIL. [Suspect]
     Active Substance: FLUOROURACIL
     Indication: METASTATIC GASTRIC CANCER
     Dosage: FIRST CYCLE, FOLLOWED BY THE SECOND CYCLE AFTER 2 WEEKS
     Route: 065
  3. FOLINIC ACID [Suspect]
     Active Substance: LEUCOVORIN
     Indication: METASTATIC GASTRIC CANCER
     Dosage: FIRST CYCLE, FOLLOWED BY THE SECOND CYCLE AFTER 2 WEEKS
     Route: 065

REACTIONS (1)
  - Posterior reversible encephalopathy syndrome [Unknown]
